FAERS Safety Report 18063836 (Version 1)
Quarter: 2020Q3

REPORT INFORMATION
  Report Type: Spontaneous
  Country: US (occurrence: US)
  Receive Date: 20200723
  Receipt Date: 20200723
  Transmission Date: 20201103
  Serious: No
  Sender: FDA-Public Use
  Company Number: US-INSUD PHARMA-2007US00168

PATIENT

DRUGS (1)
  1. EMOQUETTE [Suspect]
     Active Substance: DESOGESTREL\ETHINYL ESTRADIOL
     Indication: PRODUCT USED FOR UNKNOWN INDICATION
     Dosage: UNK
     Route: 048
     Dates: start: 201909

REACTIONS (4)
  - Acne [Unknown]
  - Abdominal distension [Unknown]
  - Feeling abnormal [Unknown]
  - Product size issue [Unknown]
